FAERS Safety Report 7582975-5 (Version None)
Quarter: 2011Q2

REPORT INFORMATION
  Report Type: 
  Country: None (occurrence: None)
  Receive Date: 20110630
  Receipt Date: 20110623
  Transmission Date: 20111010
  Serious: Yes (Hospitalization)
  Sender: FDA-Public Use
  Company Number: US-KINGPHARMUSA00001-K201100752

PATIENT
  Sex: Female

DRUGS (3)
  1. EPIPEN [Suspect]
     Indication: ANAPHYLACTIC SHOCK
     Dosage: 0.3 MG, UNK
     Route: 030
     Dates: start: 20110331, end: 20110331
  2. AVONEX [Concomitant]
     Indication: MULTIPLE SCLEROSIS
     Dosage: UNK
  3. BACTRIM [Suspect]
     Dosage: UNK
     Dates: start: 20110301, end: 20110331

REACTIONS (3)
  - ARTERIAL THROMBOSIS [None]
  - MYOCARDIAL INFARCTION [None]
  - INTRACARDIAC THROMBUS [None]
